FAERS Safety Report 12419589 (Version 6)
Quarter: 2016Q3

REPORT INFORMATION
  Report Type: Spontaneous
  Country: GB (occurrence: GB)
  Receive Date: 20160531
  Receipt Date: 20160913
  Transmission Date: 20161109
  Serious: Yes (Hospitalization, Other)
  Sender: FDA-Public Use
  Company Number: GB-VIIV HEALTHCARE LIMITED-GB2016GSK076152

PATIENT
  Age: 35 Year
  Sex: Female
  Weight: 73 kg

DRUGS (2)
  1. HEPATITIS A AND HEPATITIS B VACCINE [Concomitant]
     Indication: PROPHYLAXIS
  2. TRIUMEQ [Suspect]
     Active Substance: ABACAVIR SULFATE\DOLUTEGRAVIR SODIUM\LAMIVUDINE
     Indication: HIV TEST POSITIVE
     Dosage: 1 DF, QD
     Route: 048
     Dates: start: 20151113, end: 201605

REACTIONS (7)
  - Acute hepatic failure [Unknown]
  - Blood bilirubin abnormal [Not Recovered/Not Resolved]
  - Liver function test abnormal [Recovering/Resolving]
  - Prothrombin time abnormal [Not Recovered/Not Resolved]
  - Drug-induced liver injury [Not Recovered/Not Resolved]
  - International normalised ratio abnormal [Unknown]
  - Ocular icterus [Unknown]

NARRATIVE: CASE EVENT DATE: 201605
